FAERS Safety Report 13008952 (Version 5)
Quarter: 2017Q1

REPORT INFORMATION
  Report Type: Report from Study
  Country: US (occurrence: US)
  Receive Date: 20161208
  Receipt Date: 20170213
  Transmission Date: 20170428
  Serious: Yes (Life-Threatening, Hospitalization, Other)
  Sender: FDA-Public Use
  Company Number: US-PFIZER INC-2016510676

PATIENT
  Age: 66 Year
  Sex: Female

DRUGS (3)
  1. SUTENT [Suspect]
     Active Substance: SUNITINIB MALATE
     Indication: RENAL CELL CARCINOMA
     Dosage: UNK
     Dates: start: 20160517
  2. SUTENT [Suspect]
     Active Substance: SUNITINIB MALATE
     Dosage: 37.5 MG, CYCLIC (ONCE DAILY FOR 2 WEEKS ON/1 WEEK OFF)
     Route: 048
     Dates: start: 20160530, end: 20161121
  3. XARELTO [Suspect]
     Active Substance: RIVAROXABAN
     Dosage: UNK

REACTIONS (15)
  - Clostridium difficile infection [Unknown]
  - Diarrhoea [Not Recovered/Not Resolved]
  - Alopecia [Unknown]
  - Gastrointestinal haemorrhage [Unknown]
  - Haemorrhoids [Unknown]
  - Full blood count decreased [Unknown]
  - Secondary hypertension [Unknown]
  - Haematochezia [Unknown]
  - Haemorrhoidal haemorrhage [Recovered/Resolved]
  - Supraventricular tachycardia [Unknown]
  - Atrial fibrillation [Unknown]
  - Hyperkeratosis [Unknown]
  - Skin exfoliation [Not Recovered/Not Resolved]
  - Blood urine present [Recovered/Resolved]
  - Gingival bleeding [Unknown]

NARRATIVE: CASE EVENT DATE: 20160722
